FAERS Safety Report 13806314 (Version 2)
Quarter: 2017Q3

REPORT INFORMATION
  Report Type: Not Available
  Country: None (occurrence: US)
  Receive Date: 20170728
  Receipt Date: 20170728
  Transmission Date: 20171127
  Serious: No
  Sender: FDA-Public Use
  Company Number: US-AKORN-63687

PATIENT
  Sex: Male

DRUGS (1)
  1. COGENTIN [Suspect]
     Active Substance: BENZTROPINE MESYLATE

REACTIONS (3)
  - Toxicity to various agents [None]
  - Drug level increased [None]
  - Dyskinesia [None]
